FAERS Safety Report 16630612 (Version 1)
Quarter: 2019Q3

REPORT INFORMATION
  Report Type: Spontaneous
  Country: DE (occurrence: DE)
  Receive Date: 20190725
  Receipt Date: 20190725
  Transmission Date: 20191004
  Serious: Yes (Death, Hospitalization)
  Sender: FDA-Public Use
  Company Number: DE-PFIZER INC-2019310500

PATIENT
  Age: 73 Year
  Sex: Female
  Weight: 60 kg

DRUGS (9)
  1. BISOPROLOL [Concomitant]
     Active Substance: BISOPROLOL
     Dosage: 5 MG, 1-0-1-0, TABLET
     Route: 048
  2. ASPIRIN. [Concomitant]
     Active Substance: ASPIRIN
     Dosage: 100 MG, 1-0-0-0, TABLET
     Route: 048
  3. HYDROCHLOROTHIAZID [Concomitant]
     Active Substance: HYDROCHLOROTHIAZIDE
     Dosage: 12.5 MG, 0-1-0-0, TABLET
     Route: 048
  4. QUINAPRIL. [Concomitant]
     Active Substance: QUINAPRIL
     Dosage: 20 MG, 0-1-0-0, TABLET
     Route: 048
  5. CALCIUM FOLINATE [Suspect]
     Active Substance: LEUCOVORIN CALCIUM
     Dosage: UNK MG/M2, ACCORDING TO SCHEDULE, LATELY ON 28.12.2017, SOLUTION FOR INJECTION/INFUSION
     Route: 042
     Dates: end: 20171228
  6. PANTOPRAZOLE [Concomitant]
     Active Substance: PANTOPRAZOLE
     Dosage: 40 MG, 1-0-0-0, TABLET
     Route: 048
  7. IRINOTECAN HCL [Suspect]
     Active Substance: IRINOTECAN HYDROCHLORIDE
     Dosage: UNK MG/M2, ACCORDING TO SCHEDULE, LATELY ON 28.12.2017, SOLUTION FOR INJECTION/INFUSION
     Route: 042
     Dates: end: 20171228
  8. FLUOROURACIL. [Suspect]
     Active Substance: FLUOROURACIL
     Dosage: UNK MG/M2, ACCORDING TO SCHEDULE, LATELY ON 28.12.2017, SOLUTION FOR INJECTION/INFUSION
     Route: 042
     Dates: end: 20171228
  9. URSOFALK [Concomitant]
     Active Substance: URSODIOL
     Dosage: 250 MG, 1-0-1-0, CAPSULE
     Route: 048

REACTIONS (6)
  - General physical health deterioration [Unknown]
  - Death [Fatal]
  - Fatigue [Unknown]
  - Vomiting [Unknown]
  - Nausea [Unknown]
  - Diarrhoea [Unknown]

NARRATIVE: CASE EVENT DATE: 20180101
